FAERS Safety Report 9636239 (Version 2)
Quarter: 2013Q4

REPORT INFORMATION
  Report Type: Report from Study
  Country: US (occurrence: US)
  Receive Date: 20131021
  Receipt Date: 20131021
  Transmission Date: 20140711
  Serious: No
  Sender: FDA-Public Use
  Company Number: US-B.I. PHARMACEUTICALS,INC./RIDGEFIELD-2013-BI-30789BP

PATIENT
  Age: 65 Year
  Sex: Female

DRUGS (2)
  1. GILOTRIF [Suspect]
     Indication: NEOPLASM MALIGNANT
     Dosage: 40 MG
     Route: 048
     Dates: start: 20130925
  2. GILOTRIF [Suspect]
     Indication: NON-SMALL CELL LUNG CANCER

REACTIONS (3)
  - Diarrhoea [Not Recovered/Not Resolved]
  - Cough [Not Recovered/Not Resolved]
  - Amnesia [Recovered/Resolved with Sequelae]
